FAERS Safety Report 9531451 (Version 1)
Quarter: 2013Q2

REPORT INFORMATION
  Report Type: Spontaneous
  Country: US (occurrence: None)
  Receive Date: 20130503
  Receipt Date: 20130503
  Transmission Date: 20140414
  Serious: No
  Sender: FDA-Public Use
  Company Number: 1000044059

PATIENT
  Sex: 0

DRUGS (5)
  1. DALIRESP (ROFLUMILAST) (500 MICROGRAM, TABLETS) [Suspect]
     Indication: CHRONIC OBSTRUCTIVE PULMONARY DISEASE
     Dosage: 1 IN I DAY.
     Route: 048
     Dates: start: 20130327, end: 20130401
  2. NORCO (VICODIN) (VICODIN) [Concomitant]
  3. MORPHINE (MORPHINE) (MORPHINE) [Concomitant]
  4. IVIG (IVIG) (IVIG) [Concomitant]
  5. DOXYCYCLINE (DOXYCYCLINE) (DOXYCYCLINE) [Concomitant]

REACTIONS (1)
  - Myalgia [None]
